FAERS Safety Report 24673885 (Version 1)
Quarter: 2024Q4

REPORT INFORMATION
  Report Type: Spontaneous
  Country: PL (occurrence: PL)
  Receive Date: 20241128
  Receipt Date: 20241128
  Transmission Date: 20250114
  Serious: Yes (Other)
  Sender: ROCHE
  Company Number: PL-ROCHE-10000138669

PATIENT
  Age: 60 Year
  Sex: Female

DRUGS (3)
  1. ATEZOLIZUMAB [Suspect]
     Active Substance: ATEZOLIZUMAB
     Indication: Lung adenocarcinoma
     Route: 042
  2. ATEZOLIZUMAB [Suspect]
     Active Substance: ATEZOLIZUMAB
     Indication: Metastases to central nervous system
  3. SOTORASIB [Concomitant]
     Active Substance: SOTORASIB
     Route: 048
     Dates: start: 20220408

REACTIONS (1)
  - Rheumatic disorder [Unknown]
